FAERS Safety Report 10344523 (Version 1)
Quarter: 2014Q3

REPORT INFORMATION
  Report Type: Spontaneous
  Country: CA (occurrence: CA)
  Receive Date: 20140728
  Receipt Date: 20140728
  Transmission Date: 20150326
  Serious: Yes (Other)
  Sender: FDA-Public Use
  Company Number: PHHY2014CA091192

PATIENT
  Sex: Male

DRUGS (2)
  1. EXELON PATCH [Suspect]
     Active Substance: RIVASTIGMINE
     Dosage: EXELON PATCH 10 (AS REPORTED)
     Route: 062
     Dates: start: 201312
  2. MICARDIS [Interacting]
     Active Substance: TELMISARTAN
     Dosage: UNK UKN, UNK

REACTIONS (4)
  - Abnormal dreams [Unknown]
  - Renal failure [Unknown]
  - Nightmare [Unknown]
  - Drug interaction [Unknown]
